FAERS Safety Report 21641484 (Version 3)
Quarter: 2023Q1

REPORT INFORMATION
  Report Type: Report from Study
  Country: US (occurrence: US)
  Receive Date: 20221125
  Receipt Date: 20230327
  Transmission Date: 20230418
  Serious: Yes (Other)
  Sender: FDA-Public Use
  Company Number: US-ABBVIE-22K-163-4410386-00

PATIENT
  Sex: Male

DRUGS (1)
  1. IMBRUVICA [Suspect]
     Active Substance: IBRUTINIB
     Indication: Chronic lymphocytic leukaemia
     Route: 048
     Dates: start: 20210723

REACTIONS (17)
  - Malignant melanoma [Unknown]
  - Photosensitivity reaction [Unknown]
  - Platelet count decreased [Unknown]
  - Fatigue [Recovering/Resolving]
  - Rash [Unknown]
  - Impaired healing [Not Recovered/Not Resolved]
  - Seasonal affective disorder [Unknown]
  - Stomatitis [Unknown]
  - Contusion [Not Recovered/Not Resolved]
  - Headache [Not Recovered/Not Resolved]
  - Fatigue [Not Recovered/Not Resolved]
  - Muscle spasms [Unknown]
  - Weight increased [Unknown]
  - Unevaluable event [Unknown]
  - Myalgia [Unknown]
  - Dizziness [Unknown]
  - Muscle tightness [Unknown]
